FAERS Safety Report 16729246 (Version 1)
Quarter: 2019Q4

REPORT INFORMATION
  Report Type: Spontaneous
  Country: US (occurrence: US)
  Receive Date: 20190821
  Receipt Date: 20190821
  Transmission Date: 20200122
  Serious: Yes (Disabling)
  Sender: FDA-Public Use
  Company Number: None

PATIENT
  Age: 59 Year
  Weight: 60.75 kg

DRUGS (1)
  1. RECLAST [Suspect]
     Active Substance: ZOLEDRONIC ACID
     Indication: OSTEOPOROSIS
     Dosage: ?          OTHER FREQUENCY:ANNUAL INFUSION;?
     Route: 042
     Dates: start: 20180320

REACTIONS (12)
  - Arthralgia [None]
  - Myalgia [None]
  - Weight increased [None]
  - Malaise [None]
  - Drug ineffective [None]
  - Impaired work ability [None]
  - Insomnia [None]
  - Joint swelling [None]
  - Depression [None]
  - Quality of life decreased [None]
  - Fatigue [None]
  - Feeling abnormal [None]

NARRATIVE: CASE EVENT DATE: 20180320
